FAERS Safety Report 15348934 (Version 1)
Quarter: 2018Q3

REPORT INFORMATION
  Report Type: Spontaneous
  Country: US (occurrence: US)
  Receive Date: 20180904
  Receipt Date: 20180904
  Transmission Date: 20181010
  Serious: Yes (Death, Hospitalization)
  Sender: FDA-Public Use
  Company Number: PHEH2018US036517

PATIENT
  Sex: Female

DRUGS (2)
  1. EXEMESTANE. [Concomitant]
     Active Substance: EXEMESTANE
     Indication: BREAST CANCER METASTATIC
     Dosage: UNK
     Route: 065
  2. AFINITOR [Suspect]
     Active Substance: EVEROLIMUS
     Indication: BREAST CANCER METASTATIC
     Dosage: 10 MG, QD
     Route: 048
     Dates: start: 20180722, end: 20180822

REACTIONS (5)
  - Acute hepatic failure [Fatal]
  - Alanine aminotransferase increased [Fatal]
  - Nausea [Fatal]
  - Aspartate aminotransferase increased [Fatal]
  - Vomiting [Fatal]

NARRATIVE: CASE EVENT DATE: 20180822
